FAERS Safety Report 15701773 (Version 3)
Quarter: 2019Q1

REPORT INFORMATION
  Report Type: Spontaneous
  Country: US (occurrence: US)
  Receive Date: 20181208
  Receipt Date: 20190204
  Transmission Date: 20190417
  Serious: Yes (Other)
  Sender: FDA-Public Use
  Company Number: US-JNJFOC-20181135456

PATIENT
  Sex: Male
  Weight: 104.33 kg

DRUGS (12)
  1. NEURONTIN [Concomitant]
     Active Substance: GABAPENTIN
     Route: 048
  2. FERROUS SULFATE. [Concomitant]
     Active Substance: FERROUS SULFATE
     Route: 048
  3. AMBIEN [Concomitant]
     Active Substance: ZOLPIDEM TARTRATE
     Indication: SLEEP DISORDER
     Route: 048
  4. ZYTIGA [Suspect]
     Active Substance: ABIRATERONE ACETATE
     Indication: PROSTATE CANCER METASTATIC
     Route: 048
     Dates: start: 20180519, end: 201810
  5. ONDANSETRON [Concomitant]
     Active Substance: ONDANSETRON
     Indication: NAUSEA
     Route: 048
  6. OXYCODONE [Concomitant]
     Active Substance: OXYCODONE
     Route: 048
  7. SIMVASTATIN. [Concomitant]
     Active Substance: SIMVASTATIN
     Route: 048
  8. PRILOSEC [Concomitant]
     Active Substance: OMEPRAZOLE MAGNESIUM
     Route: 048
  9. CITRACAL [Concomitant]
     Active Substance: CALCIUM CITRATE
     Route: 048
  10. ELIQUIS [Concomitant]
     Active Substance: APIXABAN
     Route: 048
  11. TYLENOL [Concomitant]
     Active Substance: ACETAMINOPHEN
     Indication: ARTHRITIS
     Route: 048
  12. ZESTORETIC [Concomitant]
     Active Substance: HYDROCHLOROTHIAZIDE\LISINOPRIL
     Route: 048

REACTIONS (3)
  - Metastases to bone [Not Recovered/Not Resolved]
  - Drug ineffective [Unknown]
  - Adverse event [Unknown]
